FAERS Safety Report 5974222-2 (Version None)
Quarter: 2008Q4

REPORT INFORMATION
  Report Type: 
  Country: None (occurrence: None)
  Receive Date: 20081128
  Receipt Date: 20081126
  Transmission Date: 20090506
  Serious: Yes (Hospitalization)
  Sender: FDA-Public Use
  Company Number: SP02069

PATIENT
  Age: 68 Year
  Sex: Male

DRUGS (15)
  1. VISICOL [Suspect]
     Indication: COLONOSCOPY
     Dosage: 50 GM, ORAL
     Route: 048
     Dates: start: 20080924, end: 20080924
  2. MIDAZOLAM HCL [Concomitant]
  3. BISOPROLOL FUMARATE [Concomitant]
  4. URSODIOL [Concomitant]
  5. TANDOSPIRONE CITRATE [Concomitant]
  6. DIHYDROERGOTOXINE MESILATE [Concomitant]
  7. BETAHISTINE MESILATE [Concomitant]
  8. OMEPRAZOLE [Concomitant]
  9. CLOTIAZEPAM [Concomitant]
  10. ESTAZOLAM [Concomitant]
  11. DIAZEPAM [Concomitant]
  12. FLUNITRAZEPAM [Concomitant]
  13. SILODOSIN [Concomitant]
  14. FLURBIPROFEN [Concomitant]
  15. KETOPROFEN [Concomitant]

REACTIONS (3)
  - HYPOAESTHESIA [None]
  - POST PROCEDURAL COMPLICATION [None]
  - RENAL FAILURE ACUTE [None]
